FAERS Safety Report 5758897-9 (Version None)
Quarter: 2008Q2

REPORT INFORMATION
  Report Type: 
  Country: None (occurrence: None)
  Receive Date: 20080604
  Receipt Date: 20080527
  Transmission Date: 20081010
  Serious: Yes (Other)
  Sender: FDA-Public Use
  Company Number: PHHY2008CA09137

PATIENT
  Sex: Female

DRUGS (5)
  1. AREDIA [Suspect]
     Indication: OSTEOPOROSIS
     Dosage: 30 MG
     Route: 042
     Dates: start: 20080422
  2. CORTICOSTEROIDS [Concomitant]
     Indication: JUVENILE ARTHRITIS
  3. ESTROGENIC SUBSTANCE [Concomitant]
     Indication: JUVENILE ARTHRITIS
  4. PROGESTERONE [Concomitant]
     Indication: JUVENILE ARTHRITIS
  5. TESTOSTERONE [Concomitant]
     Indication: JUVENILE ARTHRITIS
     Dosage: 5 MG

REACTIONS (7)
  - DIZZINESS [None]
  - FATIGUE [None]
  - HEART RATE IRREGULAR [None]
  - IMPAIRED WORK ABILITY [None]
  - INSOMNIA [None]
  - OEDEMA PERIPHERAL [None]
  - SPEECH DISORDER [None]
